FAERS Safety Report 7367172-0 (Version None)
Quarter: 2011Q1

REPORT INFORMATION
  Report Type: 
  Country: None (occurrence: None)
  Receive Date: 20110322
  Receipt Date: 20110317
  Transmission Date: 20110831
  Serious: Yes (Hospitalization)
  Sender: FDA-Public Use
  Company Number: US-AMGEN-USASP2011015083

PATIENT
  Sex: Male

DRUGS (4)
  1. IMMUNOGLOBULINS [Concomitant]
     Dosage: UNK
     Dates: start: 20030101
  2. DANAZOL [Concomitant]
     Dosage: UNK
     Dates: start: 20040521
  3. NPLATE [Suspect]
     Indication: IDIOPATHIC THROMBOCYTOPENIC PURPURA
     Dosage: 88 A?G, UNK
     Dates: start: 20081106, end: 20110209
  4. RITUXIMAB [Concomitant]
     Dosage: UNK
     Dates: start: 20030701

REACTIONS (1)
  - CARDIAC FAILURE CONGESTIVE [None]
